FAERS Safety Report 9592195 (Version 3)
Quarter: 2014Q2

REPORT INFORMATION
  Report Type: Spontaneous
  Country: US (occurrence: US)
  Receive Date: 20131004
  Receipt Date: 20140501
  Transmission Date: 20141212
  Serious: Yes (Hospitalization)
  Sender: FDA-Public Use
  Company Number: US-BIOGENIDEC-2013BI093642

PATIENT
  Age: 68 Year
  Sex: Female
  Weight: 68 kg

DRUGS (36)
  1. AVONEX [Suspect]
     Indication: MULTIPLE SCLEROSIS
     Route: 030
     Dates: start: 2003
  2. AVONEX [Suspect]
     Indication: MULTIPLE SCLEROSIS
     Route: 030
     Dates: start: 2006
  3. AVONEX [Suspect]
     Indication: MULTIPLE SCLEROSIS
     Route: 030
     Dates: start: 20070122
  4. AVONEX [Suspect]
     Indication: MULTIPLE SCLEROSIS
     Route: 030
     Dates: start: 20120112
  5. BACLOFEN [Concomitant]
     Route: 048
     Dates: start: 20120912
  6. GABAPENTIN [Concomitant]
     Route: 048
  7. LISINOPRIL [Concomitant]
     Route: 048
  8. PROBIOTIC COMPLEX TABLET [Concomitant]
     Route: 048
  9. AMITRIPTYLINE HCL [Concomitant]
     Route: 048
  10. ATENOLOL [Concomitant]
     Route: 048
  11. BABY ASPIRIN [Concomitant]
     Route: 048
  12. CALCIUM [Concomitant]
     Route: 048
  13. CHOLESTYRAMINE [Concomitant]
     Route: 048
  14. DICYCLOMINE [Concomitant]
     Route: 048
  15. DILTZAC ER [Concomitant]
     Route: 048
  16. DORZOLAMIDE/TIMOLOL [Concomitant]
     Route: 047
  17. EPIPEN [Concomitant]
     Indication: ALLERGY TO ARTHROPOD STING
     Route: 030
  18. EVISTA [Concomitant]
     Route: 048
  19. LORATADINE [Concomitant]
     Route: 048
  20. LUMIGAN [Concomitant]
     Route: 047
  21. MELOXICAM [Concomitant]
     Route: 048
  22. MICONAZOLE 7 [Concomitant]
     Route: 067
  23. PANDEL [Concomitant]
     Route: 061
  24. PRAVASTATIN SODIUM [Concomitant]
     Route: 048
  25. PROMISEB [Concomitant]
     Route: 061
  26. RANITIDINE [Concomitant]
     Route: 048
  27. TYLENOL EX-STR [Concomitant]
     Route: 048
  28. VITAMIN B-12 TR [Concomitant]
     Route: 048
  29. VITAMIN C [Concomitant]
     Route: 048
  30. VITAMIN D [Concomitant]
     Route: 048
  31. VITAMIN E [Concomitant]
     Route: 048
  32. ASPIR EC [Concomitant]
     Route: 048
     Dates: end: 20121009
  33. COMBIGAN [Concomitant]
     Route: 047
     Dates: end: 20121009
  34. DIAZEPAM [Concomitant]
     Route: 048
     Dates: end: 20121009
  35. DIAZEPAM [Concomitant]
     Route: 048
  36. DIPHENOXYLATE/ATROPINE [Concomitant]
     Route: 048
     Dates: end: 20121009

REACTIONS (32)
  - Osteoarthritis [Not Recovered/Not Resolved]
  - Cerebral small vessel ischaemic disease [Not Recovered/Not Resolved]
  - Congenital neuropathy [Not Recovered/Not Resolved]
  - Weight increased [Unknown]
  - Blood pressure increased [Unknown]
  - Carpal tunnel syndrome [Not Recovered/Not Resolved]
  - Glaucoma [Not Recovered/Not Resolved]
  - Cataract [Recovered/Resolved]
  - Irritable bowel syndrome [Recovered/Resolved]
  - Back pain [Not Recovered/Not Resolved]
  - Intervertebral disc degeneration [Not Recovered/Not Resolved]
  - Diverticulitis [Recovered/Resolved]
  - Vitamin D deficiency [Not Recovered/Not Resolved]
  - Vitamin B12 deficiency [Not Recovered/Not Resolved]
  - Optic neuritis [Unknown]
  - Dysthymic disorder [Unknown]
  - Arthritis [Not Recovered/Not Resolved]
  - Paraesthesia [Not Recovered/Not Resolved]
  - Benign vulval neoplasm [Recovered/Resolved]
  - Faecal incontinence [Not Recovered/Not Resolved]
  - Diverticulum [Unknown]
  - Fall [Recovered/Resolved]
  - Urinary incontinence [Not Recovered/Not Resolved]
  - Hypotonia [Not Recovered/Not Resolved]
  - Nervousness [Not Recovered/Not Resolved]
  - Bladder prolapse [Not Recovered/Not Resolved]
  - Muscle spasms [Recovered/Resolved]
  - Influenza like illness [Recovered/Resolved]
  - Multiple sclerosis relapse [Recovered/Resolved]
  - Myalgia [Recovered/Resolved]
  - Chills [Recovered/Resolved]
  - Headache [Recovered/Resolved]
